FAERS Safety Report 14241552 (Version 2)
Quarter: 2017Q4

REPORT INFORMATION
  Report Type: Report from Study
  Country: AU (occurrence: AU)
  Receive Date: 20171201
  Receipt Date: 20171231
  Transmission Date: 20180321
  Serious: Yes (Hospitalization, Other)
  Sender: FDA-Public Use
  Company Number: AU-ROCHE-2033612

PATIENT
  Age: 62 Year
  Sex: Male

DRUGS (4)
  1. DOXYCYCLINE. [Concomitant]
     Active Substance: DOXYCYCLINE
  2. NASONEX [Concomitant]
     Active Substance: MOMETASONE FUROATE
     Indication: RHINITIS
     Dosage: 2 PUFFS INTRANASAL DAILY
     Route: 065
     Dates: start: 2016
  3. ESBRIET [Suspect]
     Active Substance: PIRFENIDONE
     Indication: PULMONARY FIBROSIS
     Route: 048
     Dates: start: 201705, end: 20171128
  4. PHENERGAN [Concomitant]
     Active Substance: PROMETHAZINE HYDROCHLORIDE
     Indication: RHINITIS
     Route: 048
     Dates: start: 2016

REACTIONS (2)
  - Renal failure [Unknown]
  - Renal vasculitis [Unknown]

NARRATIVE: CASE EVENT DATE: 201709
